FAERS Safety Report 25598095 (Version 2)
Quarter: 2025Q3

REPORT INFORMATION
  Report Type: Spontaneous
  Country: US (occurrence: US)
  Receive Date: 20250723
  Receipt Date: 20250807
  Transmission Date: 20251020
  Serious: Yes (Death, Hospitalization)
  Sender: GENBIOPRO
  Company Number: US-GENBIOPRO-2025GEN00009

PATIENT
  Age: 18 Year
  Sex: Female

DRUGS (4)
  1. MIFEPRISTONE [Suspect]
     Active Substance: MIFEPRISTONE
     Indication: Abortion
     Route: 048
     Dates: start: 20250617, end: 20250617
  2. MISOPROSTOL [Suspect]
     Active Substance: MISOPROSTOL
     Route: 067
     Dates: start: 20250617, end: 20250617
  3. ONDANSETRON HYDROCHLORIDE [Concomitant]
     Active Substance: ONDANSETRON HYDROCHLORIDE
     Route: 048
  4. ACETAMINOPHEN\CODEINE PHOSPHATE [Concomitant]
     Active Substance: ACETAMINOPHEN\CODEINE PHOSPHATE

REACTIONS (2)
  - Clostridial infection [Fatal]
  - Clostridial sepsis [Fatal]

NARRATIVE: CASE EVENT DATE: 20250601
